FAERS Safety Report 23526810 (Version 1)
Quarter: 2024Q1

REPORT INFORMATION
  Report Type: Report from Study
  Country: CA (occurrence: CA)
  Receive Date: 20240215
  Receipt Date: 20240215
  Transmission Date: 20240409
  Serious: Yes (Other)
  Sender: FDA-Public Use
  Company Number: CA-JNJFOC-20240226990

PATIENT
  Age: 11 Year
  Sex: Male

DRUGS (2)
  1. REMICADE [Suspect]
     Active Substance: INFLIXIMAB
     Indication: Uveitis
     Route: 041
     Dates: start: 20200921
  2. REMICADE [Suspect]
     Active Substance: INFLIXIMAB
     Indication: Enthesopathy
     Route: 041

REACTIONS (2)
  - Uveitis [Unknown]
  - Enthesopathy [Unknown]
